FAERS Safety Report 8001059 (Version 7)
Quarter: 2015Q3

REPORT INFORMATION
  Report Type: Report from Study
  Country: JP (occurrence: JP)
  Receive Date: 20110621
  Receipt Date: 20150731
  Transmission Date: 20151125
  Serious: Yes (Death, Hospitalization)
  Sender: FDA-Public Use
  Company Number: JP-PFIZER INC-2011130274

PATIENT
  Age: 56 Year
  Sex: Female
  Weight: 49.2 kg

DRUGS (4)
  1. TEMSIROLIMUS [Suspect]
     Active Substance: TEMSIROLIMUS
     Indication: RENAL CELL CARCINOMA
     Dosage: 25 MG, WEEKLY
     Route: 041
     Dates: start: 20110324, end: 20110401
  2. TEMSIROLIMUS [Suspect]
     Active Substance: TEMSIROLIMUS
     Dosage: 10 MG, WEEKLY
     Route: 041
     Dates: start: 20110408, end: 20110415
  3. VENA [Concomitant]
     Active Substance: DIPHENHYDRAMINE HYDROCHLORIDE
     Indication: PROPHYLAXIS
     Dosage: 5 DF, 1X/DAY
     Route: 048
  4. TAKEPRON OD [Concomitant]
     Active Substance: LANSOPRAZOLE
     Dosage: 30 MG (1 TABLET), 1X/DAY
     Route: 048
     Dates: start: 20110305

REACTIONS (3)
  - Renal cell carcinoma [Fatal]
  - Liver disorder [Not Recovered/Not Resolved]
  - Disease progression [Fatal]

NARRATIVE: CASE EVENT DATE: 20110328
